FAERS Safety Report 9851034 (Version 1)
Quarter: 2014Q1

REPORT INFORMATION
  Report Type: Spontaneous
  Country: US (occurrence: US)
  Receive Date: 20140128
  Receipt Date: 20140128
  Transmission Date: 20141002
  Serious: No
  Sender: FDA-Public Use
  Company Number: US-DYAX CORP.-2013DX000120

PATIENT
  Age: 0 None
  Sex: Female

DRUGS (1)
  1. KALBITOR [Suspect]
     Indication: HEREDITARY ANGIOEDEMA
     Route: 050
     Dates: start: 20120830, end: 20120830

REACTIONS (2)
  - Feeding disorder neonatal [Unknown]
  - Exposure during pregnancy [Unknown]
